FAERS Safety Report 9103833 (Version 1)
Quarter: 2013Q1

REPORT INFORMATION
  Report Type: Spontaneous
  Country: GB (occurrence: GB)
  Receive Date: 20130219
  Receipt Date: 20130219
  Transmission Date: 20140127
  Serious: Yes (Hospitalization)
  Sender: FDA-Public Use
  Company Number: GB-WATSON-2013-02585

PATIENT
  Sex: Female

DRUGS (3)
  1. TRAMADOL HYDROCHLORIDE (UNKNOWN) [Suspect]
     Indication: ANALGESIC THERAPY
     Dosage: NOT STATED
     Route: 065
  2. NITROFURANTOIN [Suspect]
     Indication: INFECTION
     Dosage: NOT STATED
     Route: 065
  3. AMITRIPTYLINE [Concomitant]
     Indication: PRODUCT USED FOR UNKNOWN INDICATION
     Dosage: UNK, UNKNOWN
     Route: 065

REACTIONS (2)
  - Dermatitis contact [Unknown]
  - Reaction to drug excipients [Unknown]
